FAERS Safety Report 8464772-1 (Version None)
Quarter: 2012Q2

REPORT INFORMATION
  Report Type: 
  Country: None (occurrence: None)
  Receive Date: 20120626
  Receipt Date: 20120619
  Transmission Date: 20120825
  Serious: Yes (Other)
  Sender: FDA-Public Use
  Company Number: BR-US-EMD SERONO, INC.-7119100

PATIENT
  Sex: Male

DRUGS (4)
  1. REBIF [Suspect]
     Indication: RELAPSING-REMITTING MULTIPLE SCLEROSIS
     Dates: start: 20100712
  2. CREATININE [Concomitant]
     Indication: PRODUCT USED FOR UNKNOWN INDICATION
  3. VITAMIN [Concomitant]
     Indication: PRODUCT USED FOR UNKNOWN INDICATION
  4. REBIF [Suspect]
     Dates: start: 20100705

REACTIONS (1)
  - HELICOBACTER GASTRITIS [None]
